FAERS Safety Report 7268991-1 (Version None)
Quarter: 2011Q1

REPORT INFORMATION
  Report Type: 
  Country: None (occurrence: None)
  Receive Date: 20110201
  Receipt Date: 20110118
  Transmission Date: 20110831
  Serious: Yes (Hospitalization)
  Sender: FDA-Public Use
  Company Number: US-ELI_LILLY_AND_COMPANY-US201008003900

PATIENT
  Sex: Female

DRUGS (13)
  1. FUROSEMIDE [Concomitant]
     Dosage: UNK, UNKNOWN
     Route: 065
  2. TYLENOL                                 /SCH/ [Concomitant]
  3. POTASSIUM [Concomitant]
  4. ADVIL LIQUI-GELS [Concomitant]
  5. XANAX [Concomitant]
     Dosage: UNK, UNKNOWN
     Route: 065
  6. FORTEO [Suspect]
     Indication: OSTEOPOROSIS
     Dosage: 20 UG, DAILY (1/D)
     Dates: start: 20090901
  7. PREDNISONE [Concomitant]
     Indication: MUSCULAR WEAKNESS
     Dosage: 20 MG, UNK
  8. PREDNISONE [Concomitant]
     Dosage: 10 MG, UNK
  9. VITAMIN B-12 [Concomitant]
  10. DILTIAZEM [Concomitant]
     Dosage: UNK, UNKNOWN
     Route: 065
  11. CALCIUM [Concomitant]
     Dosage: UNK, UNKNOWN
     Route: 065
  12. PREDNISONE [Concomitant]
     Dosage: 5 MG, UNK
  13. IRON [Concomitant]
     Dosage: UNK, UNKNOWN
     Route: 065

REACTIONS (4)
  - HEART RATE INCREASED [None]
  - OSTEOARTHRITIS [None]
  - POST PROCEDURAL COMPLICATION [None]
  - MOBILITY DECREASED [None]
